FAERS Safety Report 10433693 (Version 1)
Quarter: 2014Q3

REPORT INFORMATION
  Report Type: Spontaneous
  Country: IT (occurrence: IT)
  Receive Date: 20140905
  Receipt Date: 20140905
  Transmission Date: 20150326
  Serious: Yes (Death, Hospitalization)
  Sender: FDA-Public Use
  Company Number: IT-SA-2014SA117427

PATIENT
  Age: 61 Year
  Sex: Male
  Weight: 82 kg

DRUGS (3)
  1. ENOXAPARIN SODIUM. [Suspect]
     Active Substance: ENOXAPARIN SODIUM
     Indication: THROMBOPHLEBITIS
     Route: 058
     Dates: start: 20131001, end: 20140401
  2. ZIDOVUDINE. [Suspect]
     Active Substance: ZIDOVUDINE
     Indication: HIV INFECTION
     Route: 048
     Dates: start: 20090101, end: 20140401
  3. LINEZOLID. [Suspect]
     Active Substance: LINEZOLID
     Indication: OSTEOMYELITIS CHRONIC
     Route: 048
     Dates: start: 20130401, end: 20140401

REACTIONS (6)
  - Thrombocytopenia [Fatal]
  - Off label use [Fatal]
  - Bone marrow failure [Fatal]
  - Leukopenia [Fatal]
  - Pancytopenia [Fatal]
  - Anaemia [Fatal]

NARRATIVE: CASE EVENT DATE: 20140401
